FAERS Safety Report 23846568 (Version 1)
Quarter: 2024Q2

REPORT INFORMATION
  Report Type: Spontaneous
  Country: CN (occurrence: CN)
  Receive Date: 20240513
  Receipt Date: 20240513
  Transmission Date: 20240716
  Serious: Yes (Hospitalization, Other)
  Sender: FDA-Public Use
  Company Number: None

PATIENT
  Age: 61 Year
  Sex: Female
  Weight: 62 kg

DRUGS (1)
  1. TRESIBA [Suspect]
     Active Substance: INSULIN DEGLUDEC
     Indication: Type 1 diabetes mellitus
     Dosage: 10 IU, QD
     Route: 023
     Dates: start: 20240422, end: 20240424

REACTIONS (5)
  - Dizziness [Recovering/Resolving]
  - Asthenia [Recovering/Resolving]
  - Blood glucose increased [Unknown]
  - Liquid product physical issue [Unknown]
  - Product use issue [Unknown]

NARRATIVE: CASE EVENT DATE: 20240422
